FAERS Safety Report 4871869-1 (Version None)
Quarter: 2005Q4

REPORT INFORMATION
  Report Type: 
  Country: None (occurrence: None)
  Receive Date: 20051230
  Receipt Date: 20051215
  Transmission Date: 20060501
  Serious: Yes (Death)
  Sender: FDA-Public Use
  Company Number: 2005-02553

PATIENT
  Age: 60 Year
  Sex: Female

DRUGS (4)
  1. VELCADE [Suspect]
     Indication: MULTIPLE MYELOMA
     Dosage: SINGLE, INTRATHECAL
     Route: 037
     Dates: start: 20051212, end: 20051212
  2. METHOTREXATE [Suspect]
     Indication: MULTIPLE MYELOMA
     Dosage: SINGLE, INTRATHECAL
     Route: 037
     Dates: start: 20051212, end: 20051212
  3. MELPHALAN(MELPHALAN) VIAL [Suspect]
     Indication: MULTIPLE MYELOMA
     Dosage: INTRATHECAL
     Route: 037
     Dates: start: 20051212, end: 20051212
  4. HYDROCORTISONE [Suspect]
     Indication: MULTIPLE MYELOMA
     Dosage: SINGLE, INTRATHECAL
     Route: 037
     Dates: start: 20051212, end: 20051212

REACTIONS (3)
  - CONDITION AGGRAVATED [None]
  - INCORRECT ROUTE OF DRUG ADMINISTRATION [None]
  - INTRACRANIAL PRESSURE INCREASED [None]
